FAERS Safety Report 23368412 (Version 2)
Quarter: 2024Q1

REPORT INFORMATION
  Report Type: Report from Study
  Country: CA (occurrence: CA)
  Receive Date: 20240105
  Receipt Date: 20240110
  Transmission Date: 20240410
  Serious: Yes (Hospitalization)
  Sender: FDA-Public Use
  Company Number: CA-ABBVIE-5570540

PATIENT
  Sex: Male

DRUGS (2)
  1. RINVOQ [Suspect]
     Active Substance: UPADACITINIB
     Indication: Crohn^s disease
     Dosage: FORM STRENGTH: 45 MILLIGRAM?FREQUENCY TEXT: 45 MG FOR 12 WEEKS, THEN 30 MG
     Route: 048
     Dates: start: 20231120
  2. RINVOQ [Suspect]
     Active Substance: UPADACITINIB
     Indication: Crohn^s disease
     Route: 048

REACTIONS (3)
  - Chills [Recovering/Resolving]
  - Infection [Unknown]
  - Heart rate increased [Unknown]
